FAERS Safety Report 20830212 (Version 1)
Quarter: 2022Q2

REPORT INFORMATION
  Report Type: Spontaneous
  Country: US (occurrence: US)
  Receive Date: 20220514
  Receipt Date: 20220514
  Transmission Date: 20220721
  Serious: No
  Sender: FDA-Public Use
  Company Number: US-BRISTOL-MYERS SQUIBB COMPANY-2022-036145

PATIENT
  Age: 59 Year
  Sex: Male

DRUGS (1)
  1. REVLIMID [Suspect]
     Active Substance: LENALIDOMIDE
     Indication: Cytopenia
     Dosage: DOSE ONGOING
     Route: 048
     Dates: start: 202112

REACTIONS (3)
  - Dyspnoea [Unknown]
  - Dizziness [Unknown]
  - Off label use [Unknown]
